FAERS Safety Report 14951495 (Version 2)
Quarter: 2018Q2

REPORT INFORMATION
  Report Type: Report from Study
  Country: None (occurrence: US)
  Receive Date: 20180530
  Receipt Date: 20180530
  Transmission Date: 20180711
  Serious: Yes (Other)
  Sender: FDA-Public Use
  Company Number: US-BIODELIVERY SCIENCES INTERNATIONAL-2017BDSI0030

PATIENT
  Age: 33 Year
  Sex: Female
  Weight: 84.5 kg

DRUGS (2)
  1. NALTREXONE [Suspect]
     Active Substance: NALTREXONE
     Indication: DRUG LEVEL
     Route: 048
     Dates: start: 20170123, end: 20170125
  2. BUPRENORPHINE/NALOXONE [Suspect]
     Active Substance: BUPRENORPHINE\NALOXONE
     Indication: DRUG LEVEL
     Dosage: 2/0.5 MG
     Dates: start: 20170124

REACTIONS (3)
  - Pregnancy test positive [Not Recovered/Not Resolved]
  - Maternal exposure during pregnancy [None]
  - Pregnancy on contraceptive [None]

NARRATIVE: CASE EVENT DATE: 20170206
